FAERS Safety Report 6988197-0 (Version None)
Quarter: 2010Q3

REPORT INFORMATION
  Report Type: 
  Country: None (occurrence: None)
  Receive Date: 20100916
  Receipt Date: 20100909
  Transmission Date: 20110219
  Serious: Yes (Other)
  Sender: FDA-Public Use
  Company Number: JP-ROCHE-726679

PATIENT
  Sex: Male

DRUGS (2)
  1. OSELTAMIVIR [Suspect]
     Dosage: FORM: ORAL FORMULATION (NOT OTHERWISE SPECIFIED)
     Route: 064
     Dates: start: 20091110, end: 20091114
  2. FLU VACCINATION [Concomitant]
     Dosage: DRUG NAME REPORTED AS SEASONAL FLU VACCINATION

REACTIONS (4)
  - DRUG EXPOSURE DURING PREGNANCY [None]
  - DYSMORPHISM [None]
  - NEONATAL HYPOXIA [None]
  - SYNDACTYLY [None]
